FAERS Safety Report 11693795 (Version 1)
Quarter: 2015Q4

REPORT INFORMATION
  Report Type: Spontaneous
  Country: JP (occurrence: JP)
  Receive Date: 20151103
  Receipt Date: 20151103
  Transmission Date: 20160304
  Serious: Yes (Death, Other)
  Sender: FDA-Public Use
  Company Number: JP-MYLANLABS-2015M1037412

PATIENT

DRUGS (2)
  1. ERLOTINIB [Suspect]
     Active Substance: ERLOTINIB
     Indication: LUNG ADENOCARCINOMA STAGE IV
     Dosage: 150 MG/DAY FOR 18 DAYS
     Route: 065
  2. ERLOTINIB [Suspect]
     Active Substance: ERLOTINIB
     Dosage: 100 MG, QD
     Route: 065

REACTIONS (4)
  - Disease progression [Fatal]
  - Drug resistance [Unknown]
  - Lung adenocarcinoma [Fatal]
  - Small cell carcinoma [Not Recovered/Not Resolved]
